FAERS Safety Report 8191773-3 (Version None)
Quarter: 2012Q1

REPORT INFORMATION
  Report Type: 
  Country: None (occurrence: None)
  Receive Date: 20120307
  Receipt Date: 20120302
  Transmission Date: 20120608
  Serious: Yes (Death)
  Sender: FDA-Public Use
  Company Number: CHPA2012US004330

PATIENT
  Sex: Male

DRUGS (3)
  1. GAS-X PREVENTION [Suspect]
     Indication: CONSTIPATION
     Dosage: UNK, UNK
  2. DRUG THERAPY NOS [Concomitant]
     Indication: NEOPLASM MALIGNANT
     Dosage: UNK, UNK
  3. ANALGESICS [Concomitant]
     Dosage: UNK, UNK

REACTIONS (2)
  - OFF LABEL USE [None]
  - DEATH [None]
